FAERS Safety Report 13345280 (Version 1)
Quarter: 2017Q1

REPORT INFORMATION
  Report Type: Spontaneous
  Country: US (occurrence: US)
  Receive Date: 20170316
  Receipt Date: 20170316
  Transmission Date: 20170428
  Serious: Yes (Hospitalization)
  Sender: FDA-Public Use
  Company Number: None

PATIENT
  Age: 47 Year
  Sex: Male

DRUGS (5)
  1. ZORTRESS [Suspect]
     Active Substance: EVEROLIMUS
     Indication: AGRANULOCYTOSIS
  2. ZORTRESS [Suspect]
     Active Substance: EVEROLIMUS
     Indication: LUNG TRANSPLANT REJECTION
  3. ZORTRESS [Suspect]
     Active Substance: EVEROLIMUS
     Indication: HEART TRANSPLANT REJECTION
  4. ZORTRESS [Suspect]
     Active Substance: EVEROLIMUS
     Indication: LUNG TRANSPLANT
  5. ZORTRESS [Suspect]
     Active Substance: EVEROLIMUS
     Indication: NEUTROPENIA

REACTIONS (3)
  - Haemoglobin decreased [None]
  - Endoscopy [None]
  - Colonoscopy [None]

NARRATIVE: CASE EVENT DATE: 20170224
